FAERS Safety Report 6695250-8 (Version None)
Quarter: 2010Q2

REPORT INFORMATION
  Report Type: 
  Country: None (occurrence: None)
  Receive Date: 20100423
  Receipt Date: 20100412
  Transmission Date: 20101027
  Serious: Yes (Hospitalization, Other)
  Sender: FDA-Public Use
  Company Number: US-ELI_LILLY_AND_COMPANY-US200812004491

PATIENT
  Age: 80 Year
  Sex: Female
  Weight: 59.864 kg

DRUGS (4)
  1. FORTEO [Suspect]
     Indication: OSTEOPOROSIS
     Dosage: 20 UG, DAILY (1/D)
     Dates: start: 20081101
  2. FORTEO [Suspect]
     Dosage: 20 UG, DAILY (1/D)
     Dates: start: 20090101
  3. SYNTHROID [Concomitant]
  4. ASPIRIN [Concomitant]

REACTIONS (9)
  - CEREBRAL THROMBOSIS [None]
  - CEREBROVASCULAR ACCIDENT [None]
  - DIZZINESS [None]
  - EXTRASYSTOLES [None]
  - FALL [None]
  - HEART RATE INCREASED [None]
  - HYPERSENSITIVITY [None]
  - MEMORY IMPAIRMENT [None]
  - VISUAL IMPAIRMENT [None]
